FAERS Safety Report 23188904 (Version 1)
Quarter: 2023Q4

REPORT INFORMATION
  Report Type: Spontaneous
  Country: SI (occurrence: SI)
  Receive Date: 20231115
  Receipt Date: 20231115
  Transmission Date: 20240110
  Serious: Yes (Hospitalization, Other)
  Sender: FDA-Public Use
  Company Number: SI-009507513-2311SVN004763

PATIENT
  Age: 51 Year
  Sex: Male

DRUGS (1)
  1. PEMBROLIZUMAB [Suspect]
     Active Substance: PEMBROLIZUMAB
     Dosage: UNK
     Dates: start: 201911

REACTIONS (4)
  - Skin toxicity [Unknown]
  - COVID-19 pneumonia [Unknown]
  - Immune-mediated arthritis [Unknown]
  - Depression [Unknown]

NARRATIVE: CASE EVENT DATE: 20210401
